FAERS Safety Report 5815172-1 (Version None)
Quarter: 2008Q3

REPORT INFORMATION
  Report Type: 
  Country: None (occurrence: None)
  Receive Date: 20080718
  Receipt Date: 20080708
  Transmission Date: 20090109
  Serious: Yes (Death)
  Sender: FDA-Public Use
  Company Number: FI-ROCHE-574761

PATIENT
  Sex: Female

DRUGS (3)
  1. XELODA [Suspect]
     Indication: RECTAL CANCER
     Route: 048
     Dates: start: 20080605, end: 20080612
  2. ELPLAT [Suspect]
     Indication: RECTAL CANCER
     Dosage: ROUTE: INTRAVENOUS INFUSION
     Route: 042
     Dates: start: 20080605, end: 20080612
  3. PROGYNOVA [Concomitant]
     Route: 048
     Dates: start: 19800101, end: 20080616

REACTIONS (5)
  - DIARRHOEA [None]
  - NEUTROPENIA [None]
  - PARAESTHESIA [None]
  - STOMATITIS [None]
  - THROMBOCYTOPENIA [None]
